FAERS Safety Report 7275557-6 (Version None)
Quarter: 2011Q1

REPORT INFORMATION
  Report Type: 
  Country: None (occurrence: None)
  Receive Date: 20110204
  Receipt Date: 20110124
  Transmission Date: 20110831
  Serious: Yes (Death, Hospitalization)
  Sender: FDA-Public Use
  Company Number: US-ACTELION-A-NJ2011-43833

PATIENT

DRUGS (3)
  1. VENTAVIS [Suspect]
     Indication: PULMONARY ARTERIAL HYPERTENSION
     Dosage: 5 ?G, 4 TO 6 TIMES DAILY
     Route: 055
     Dates: start: 20101111, end: 20110105
  2. TRACLEER [Concomitant]
     Indication: PULMONARY ARTERIAL HYPERTENSION
     Dosage: 125 MG, BID
     Route: 048
     Dates: start: 20100501, end: 20110105
  3. TRACLEER [Concomitant]
     Dosage: UNK
     Route: 048
     Dates: start: 20081008

REACTIONS (1)
  - RENAL FAILURE ACUTE [None]
